FAERS Safety Report 5214163-1 (Version None)
Quarter: 2007Q1

REPORT INFORMATION
  Report Type: 
  Country: None (occurrence: None)
  Receive Date: 20070122
  Receipt Date: 20070112
  Transmission Date: 20070707
  Serious: Yes (Hospitalization)
  Sender: FDA-Public Use
  Company Number: US-AVENTIS-200710286US

PATIENT
  Sex: Female
  Weight: 72.57 kg

DRUGS (2)
  1. LOVENOX [Suspect]
     Dates: start: 20070110, end: 20070110
  2. LOVENOX [Suspect]
     Dosage: DOSE: UNK

REACTIONS (3)
  - HAEMOGLOBIN DECREASED [None]
  - HAEMORRHAGE [None]
  - SUICIDE ATTEMPT [None]
